FAERS Safety Report 14140166 (Version 1)
Quarter: 2017Q4

REPORT INFORMATION
  Report Type: Spontaneous
  Country: US (occurrence: US)
  Receive Date: 20171030
  Receipt Date: 20171030
  Transmission Date: 20180321
  Serious: No
  Sender: FDA-Public Use
  Company Number: US-ENDO PHARMACEUTICALS INC-2017-001401

PATIENT
  Sex: Female

DRUGS (1)
  1. AMITRIPTYLINE HCL [Suspect]
     Active Substance: AMITRIPTYLINE
     Indication: HEADACHE
     Dosage: UNK UNK, UNKNOWN
     Route: 048

REACTIONS (2)
  - Nightmare [Recovered/Resolved]
  - Drug ineffective for unapproved indication [Unknown]
